FAERS Safety Report 7275370-X (Version None)
Quarter: 2011Q1

REPORT INFORMATION
  Report Type: 
  Country: None (occurrence: None)
  Receive Date: 20110204
  Receipt Date: 20110125
  Transmission Date: 20110831
  Serious: Yes (Hospitalization)
  Sender: FDA-Public Use
  Company Number: US-ELI_LILLY_AND_COMPANY-US201101006369

PATIENT
  Age: 64 Year
  Sex: Female

DRUGS (5)
  1. ANTIBIOTICS [Concomitant]
  2. CYMBALTA [Suspect]
     Dosage: 20 MG, DAILY (1/D)
  3. MULTIVITAMIN [Concomitant]
  4. CYMBALTA [Suspect]
     Dosage: 30 MG, DAILY (1/D)
  5. CYMBALTA [Suspect]
     Indication: NEUROPATHY PERIPHERAL
     Dosage: 60 MG, UNK
     Dates: start: 20101001

REACTIONS (13)
  - BODY TEMPERATURE DECREASED [None]
  - DIZZINESS [None]
  - BLOOD PRESSURE DECREASED [None]
  - ASTHENIA [None]
  - FLAT AFFECT [None]
  - DRUG WITHDRAWAL SYNDROME [None]
  - OFF LABEL USE [None]
  - VISUAL IMPAIRMENT [None]
  - DISORIENTATION [None]
  - URINARY TRACT INFECTION [None]
  - TINNITUS [None]
  - HALLUCINATION [None]
  - TREMOR [None]
